FAERS Safety Report 13181923 (Version 4)
Quarter: 2019Q1

REPORT INFORMATION
  Report Type: Spontaneous
  Country: US (occurrence: US)
  Receive Date: 20170202
  Receipt Date: 20190303
  Transmission Date: 20190417
  Serious: No
  Sender: FDA-Public Use
  Company Number: US-IMPAX LABORATORIES, INC-2016-IPXL-02284

PATIENT
  Sex: Female
  Weight: 60 kg

DRUGS (10)
  1. RYTARY [Suspect]
     Active Substance: CARBIDOPA\LEVODOPA
     Dosage: 36.25/145 MG, 3 CAPSULES 4 TIMES DAILY PLUS 61.25/245 MG, 1 CAPSULE 4 TIMES DAILY
     Route: 048
  2. METOPROLOL SUCCINATE. [Concomitant]
     Active Substance: METOPROLOL SUCCINATE
     Indication: HYPERTENSION
     Dosage: 25 MG, UNK
     Route: 065
  3. RYTARY [Suspect]
     Active Substance: CARBIDOPA\LEVODOPA
     Dosage: 23.75/95 MG AT 7AM AND 3 PM AND 36.25/145MG AT 7AM, 11AM, 3PM AND 7PM AND THEN 48.75/195MG AT 11PM
     Route: 048
  4. MAXZIDE [Concomitant]
     Active Substance: HYDROCHLOROTHIAZIDE\TRIAMTERENE
     Indication: HYPERTENSION
     Dosage: UNK
     Route: 048
  5. WELCHOL [Concomitant]
     Active Substance: COLESEVELAM HYDROCHLORIDE
     Indication: BLOOD CHOLESTEROL INCREASED
     Dosage: UNK
     Route: 048
  6. MIRAPEX [Concomitant]
     Active Substance: PRAMIPEXOLE DIHYDROCHLORIDE
     Indication: PARKINSON^S DISEASE
     Dosage: UNK
     Route: 048
  7. RYTARY [Suspect]
     Active Substance: CARBIDOPA\LEVODOPA
     Indication: PARKINSON^S DISEASE
     Dosage: 36.25/145 MG 1 CAPSULE 3 TIMES DAILY
     Route: 048
  8. METOPROLOL. [Concomitant]
     Active Substance: METOPROLOL
     Indication: HYPERTENSION
     Dosage: 25 MG, UNK
     Route: 048
  9. RYTARY [Suspect]
     Active Substance: CARBIDOPA\LEVODOPA
     Dosage: 23.75/95 MG AND 36.25 MG/145MG; 4/DAY AND 61.25/245MG; 1/DAY
     Route: 048
  10. CLONAZEPAM. [Concomitant]
     Active Substance: CLONAZEPAM
     Indication: ANXIETY
     Dosage: UNK
     Route: 048

REACTIONS (9)
  - Muscle spasms [Not Recovered/Not Resolved]
  - Malaise [Unknown]
  - Memory impairment [Not Recovered/Not Resolved]
  - Dyskinesia [Not Recovered/Not Resolved]
  - Hypokinesia [Not Recovered/Not Resolved]
  - Tremor [Not Recovered/Not Resolved]
  - Freezing phenomenon [Not Recovered/Not Resolved]
  - Nervousness [Unknown]
  - Abnormal dreams [Unknown]

NARRATIVE: CASE EVENT DATE: 2016
